FAERS Safety Report 9234587 (Version 1)
Quarter: 2013Q1

REPORT INFORMATION
  Report Type: Spontaneous
  Country: US (occurrence: None)
  Receive Date: 20121031
  Receipt Date: 20121031
  Transmission Date: 20140127
  Serious: Yes (Other)
  Sender: FDA-Public Use
  Company Number: PHEH2012US013143

PATIENT
  Age: 36 Year
  Sex: Female

DRUGS (5)
  1. GILENYA (FTY) CAPSULE [Suspect]
     Indication: MULTIPLE SCLEROSIS
     Route: 048
     Dates: start: 20120531, end: 20120531
  2. MIDODRINE (MIDODRINE) [Concomitant]
  3. PERCOCET (OXYCODONE HYDROCHLORIDE PARACETAMOL) [Concomitant]
  4. ZANAFLEX (TIZANIDINE HYDROCHLORIDE) [Concomitant]
  5. CELEXA (CITALOPRAM HYDROBROMIDE) [Concomitant]

REACTIONS (1)
  - Bradycardia [None]
